APPROVED DRUG PRODUCT: MEDROXYPROGESTERONE ACETATE
Active Ingredient: MEDROXYPROGESTERONE ACETATE
Strength: 10MG
Dosage Form/Route: TABLET;ORAL
Application: A040311 | Product #003
Applicant: DURAMED PHARMACEUTICALS INC SUB BARR LABORATORIES INC
Approved: Dec 1, 1999 | RLD: No | RS: No | Type: DISCN